FAERS Safety Report 12250032 (Version 3)
Quarter: 2016Q4

REPORT INFORMATION
  Report Type: Report from Study
  Country: US (occurrence: US)
  Receive Date: 20160408
  Receipt Date: 20161019
  Transmission Date: 20170207
  Serious: Yes (Hospitalization, Other)
  Sender: FDA-Public Use
  Company Number: US-GILEAD-2016-0207604

PATIENT
  Age: 75 Year
  Sex: Female

DRUGS (4)
  1. AMBRISENTAN [Suspect]
     Active Substance: AMBRISENTAN
     Indication: PRODUCT USED FOR UNKNOWN INDICATION
     Dosage: 10 MG, QD
     Route: 065
     Dates: start: 20121210
  2. OXYGEN. [Concomitant]
     Active Substance: OXYGEN
  3. XARELTO [Concomitant]
     Active Substance: RIVAROXABAN
  4. REVATIO [Concomitant]
     Active Substance: SILDENAFIL CITRATE

REACTIONS (6)
  - Lung infection [Unknown]
  - Chronic obstructive pulmonary disease [Recovered/Resolved]
  - Respiratory tract infection [Unknown]
  - Mite allergy [Unknown]
  - Allergy to animal [Unknown]
  - Expired product administered [Unknown]
